FAERS Safety Report 11308965 (Version 2)
Quarter: 2015Q3

REPORT INFORMATION
  Report Type: Spontaneous
  Country: US (occurrence: US)
  Receive Date: 20150724
  Receipt Date: 20150803
  Transmission Date: 20151125
  Serious: Yes (Hospitalization)
  Sender: FDA-Public Use
  Company Number: US-BAXTER-2015BAX039845

PATIENT
  Sex: Female

DRUGS (6)
  1. DIANEAL LOW CALCIUM PERITONEAL DIALYSIS SOLUTION WITH DEXTROSE [Suspect]
     Active Substance: CALCIUM CHLORIDE\DEXTROSE\MAGNESIUM CHLORIDE\SODIUM CHLORIDE\SODIUM LACTATE
     Indication: CHRONIC KIDNEY DISEASE
     Dosage: COMBINATION OF DIANEAL PD4 AMBUFLEX AND DIANEAL PD4 ULTRABAG (2000ML, 5 CYCLES NIGHTLY AS NEEDED WIT
     Route: 033
     Dates: start: 20150119
  2. DIANEAL LOW CALCIUM PERITONEAL DIALYSIS SOLUTION WITH DEXTROSE [Suspect]
     Active Substance: CALCIUM CHLORIDE\DEXTROSE\MAGNESIUM CHLORIDE\SODIUM CHLORIDE\SODIUM LACTATE
     Indication: CHRONIC KIDNEY DISEASE
     Dosage: COMBINATION OF DIANEAL PD4 AMBUFLEX AND DIANEAL PD4 ULTRABAG (2000ML, 5 CYCLES NIGHTLY AS NEEDED WIT
     Route: 033
     Dates: start: 20150119
  3. DIANEAL LOW CALCIUM PERITONEAL DIALYSIS SOLUTION WITH DEXTROSE [Suspect]
     Active Substance: CALCIUM CHLORIDE\DEXTROSE\MAGNESIUM CHLORIDE\SODIUM CHLORIDE\SODIUM LACTATE
     Indication: CHRONIC KIDNEY DISEASE
     Dosage: COMBINATION OF DIANEAL PD4 AMBUFLEX AND DIANEAL PD4 ULTRABAG (2000ML, 5 CYCLES NIGHTLY AS NEEDED WIT
     Route: 033
     Dates: start: 20150119
  4. DIANEAL LOW CALCIUM PERITONEAL DIALYSIS SOLUTION WITH DEXTROSE [Suspect]
     Active Substance: CALCIUM CHLORIDE\DEXTROSE\MAGNESIUM CHLORIDE\SODIUM CHLORIDE\SODIUM LACTATE
     Indication: CHRONIC KIDNEY DISEASE
     Dosage: COMBINATION OF DIANEAL PD4 AMBUFLEX AND DIANEAL PD4 ULTRABAG (2000ML, 5 CYCLES NIGHTLY AS NEEDED WIT
     Route: 033
     Dates: start: 20150119
  5. DIANEAL LOW CALCIUM PERITONEAL DIALYSIS SOLUTION WITH DEXTROSE [Suspect]
     Active Substance: CALCIUM CHLORIDE\DEXTROSE\MAGNESIUM CHLORIDE\SODIUM CHLORIDE\SODIUM LACTATE
     Indication: CHRONIC KIDNEY DISEASE
     Dosage: COMBINATION OF DIANEAL PD4 AMBUFLEX AND DIANEAL PD4 ULTRABAG (2000ML, 5 CYCLES NIGHTLY AS NEEDED WIT
     Route: 033
     Dates: start: 20150119
  6. DIANEAL LOW CALCIUM PERITONEAL DIALYSIS SOLUTION WITH DEXTROSE [Suspect]
     Active Substance: CALCIUM CHLORIDE\DEXTROSE\MAGNESIUM CHLORIDE\SODIUM CHLORIDE\SODIUM LACTATE
     Indication: CHRONIC KIDNEY DISEASE
     Dosage: COMBINATION OF DIANEAL PD4 AMBUFLEX AND DIANEAL PD4 ULTRABAG (2000ML, 5 CYCLES NIGHTLY AS NEEDED WIT
     Route: 033
     Dates: start: 20150119

REACTIONS (1)
  - Gangrene [Recovering/Resolving]
